FAERS Safety Report 4740717-2 (Version None)
Quarter: 2005Q3

REPORT INFORMATION
  Report Type: 
  Country: None (occurrence: None)
  Receive Date: 20050801
  Receipt Date: 20050629
  Transmission Date: 20060218
  Serious: No
  Sender: FDA-Public Use
  Company Number: 2005PV000190

PATIENT
  Age: 74 Year
  Sex: Female
  Weight: 54.4316 kg

DRUGS (11)
  1. BYETTA [Suspect]
     Indication: DIABETES MELLITUS NON-INSULIN-DEPENDENT
     Dosage: 5 UG; BID; SC
     Route: 058
     Dates: start: 20050622
  2. THYROID TAB [Concomitant]
  3. ACTOS [Concomitant]
  4. DEMADEX [Concomitant]
  5. OXYCONTIN [Concomitant]
  6. ZOLOFT [Concomitant]
  7. LOPRESSOR [Concomitant]
  8. LOTREL [Concomitant]
  9. ZOCOR [Concomitant]
  10. AMBIEN [Concomitant]
  11. ASPIRIN [Concomitant]

REACTIONS (1)
  - NAUSEA [None]
